FAERS Safety Report 7124746-X (Version None)
Quarter: 2010Q4

REPORT INFORMATION
  Report Type: 
  Country: None (occurrence: None)
  Receive Date: 20101115
  Receipt Date: 20101101
  Transmission Date: 20110411
  Serious: Yes (Death)
  Sender: FDA-Public Use
  Company Number: CV20100612

PATIENT
  Age: 33 Year
  Sex: Female

DRUGS (6)
  1. PROPOFOL [Suspect]
     Indication: SEDATION
  2. COLCHICINE [Suspect]
     Indication: PRODUCT USED FOR UNKNOWN INDICATION
  3. ATORVASTATINE (ATORVASTATIN) [Suspect]
     Indication: PRODUCT USED FOR UNKNOWN INDICATION
  4. IBUPROFEN [Concomitant]
  5. DICLOFENAC [Concomitant]
  6. FUROSEMIDE [Concomitant]

REACTIONS (12)
  - ACUTE HEPATIC FAILURE [None]
  - ACUTE LUNG INJURY [None]
  - ARRHYTHMIA [None]
  - HYPERAMMONAEMIC ENCEPHALOPATHY [None]
  - HYPERTRIGLYCERIDAEMIA [None]
  - HYPOXIA [None]
  - MULTIPLE DRUG OVERDOSE [None]
  - PANCYTOPENIA [None]
  - PROPOFOL INFUSION SYNDROME [None]
  - RENAL FAILURE ACUTE [None]
  - RHABDOMYOLYSIS [None]
  - SEPSIS [None]
